FAERS Safety Report 7519461-4 (Version None)
Quarter: 2011Q2

REPORT INFORMATION
  Report Type: 
  Country: None (occurrence: None)
  Receive Date: 20110524
  Receipt Date: 20110510
  Transmission Date: 20111010
  Serious: No
  Sender: FDA-Public Use
  Company Number: LTI2011A00118

PATIENT
  Age: 76 Year
  Sex: Female

DRUGS (3)
  1. DIAMICRON (GLICLAZIDE) [Concomitant]
  2. GLUCOPHAGE [Concomitant]
  3. COMETACT (PIOGLITAZONE HYDROCHLORIDE, METFORMIN HYDROCHLORIDE) [Suspect]
     Indication: TYPE 2 DIABETES MELLITUS
     Dosage: 2 TAB. (1 TAB., 2 IN 1 D), ORAL
     Route: 048
     Dates: start: 20080301, end: 20090201

REACTIONS (4)
  - ALOPECIA [None]
  - DYSPNOEA [None]
  - MYOCARDIAL INFARCTION [None]
  - WEIGHT INCREASED [None]
